FAERS Safety Report 23661077 (Version 7)
Quarter: 2025Q2

REPORT INFORMATION
  Report Type: Report from Study
  Country: CO (occurrence: CO)
  Receive Date: 20240322
  Receipt Date: 20250610
  Transmission Date: 20250716
  Serious: Yes (Hospitalization)
  Sender: IPSEN BIOPHARMACEUTICALS, INC.
  Company Number: CO-IPSEN Group, Research and Development-2024-04645

PATIENT
  Age: 36 Year
  Sex: Female
  Weight: 83 kg

DRUGS (10)
  1. LANREOTIDE ACETATE [Suspect]
     Active Substance: LANREOTIDE ACETATE
     Indication: Acromegaly
     Dosage: DEEP SUBCUTANEOUS
     Route: 058
     Dates: start: 20240216
  2. LEVOTHYROXINE [Concomitant]
     Active Substance: LEVOTHYROXINE
     Indication: Hypothyroidism
     Route: 048
     Dates: start: 2004, end: 2020
  3. LEVOTHYROXINE [Concomitant]
     Active Substance: LEVOTHYROXINE
     Route: 048
     Dates: start: 2020
  4. SPIRONOLACTONE [Concomitant]
     Active Substance: SPIRONOLACTONE
     Indication: Polycystic ovaries
     Route: 048
     Dates: start: 2021
  5. SPIRONOLACTONE [Concomitant]
     Active Substance: SPIRONOLACTONE
     Route: 048
     Dates: start: 2023
  6. OMEPRAZOLE [Concomitant]
     Active Substance: OMEPRAZOLE
     Indication: Gastritis
     Dosage: 1 TABLET EVERY 24 HOURS
     Route: 048
     Dates: start: 2006
  7. LORAZEPAM [Concomitant]
     Active Substance: LORAZEPAM
     Route: 048
     Dates: start: 20240321
  8. LIRAGLUTIDE [Concomitant]
     Active Substance: LIRAGLUTIDE
     Dates: start: 202311
  9. LAMOTRIGINE [Concomitant]
     Active Substance: LAMOTRIGINE
     Indication: Depression
     Dosage: 1 TABLET PER DAY
     Route: 048
     Dates: start: 2014
  10. BUPROPION CHLORIDE [Concomitant]
     Indication: Depression
     Dosage: 1 TABLET PER DAY
     Route: 048
     Dates: start: 2004

REACTIONS (10)
  - Pain [Recovering/Resolving]
  - Anxiety [Recovering/Resolving]
  - Influenza [Recovering/Resolving]
  - Tooth disorder [Not Recovered/Not Resolved]
  - Glycosylated haemoglobin increased [Not Recovered/Not Resolved]
  - Depression [Not Recovered/Not Resolved]
  - Off label use [Unknown]
  - Inappropriate schedule of product administration [Unknown]
  - Product supply issue [Unknown]
  - Product dose omission issue [Unknown]

NARRATIVE: CASE EVENT DATE: 20240201
